FAERS Safety Report 17306736 (Version 11)
Quarter: 2022Q1

REPORT INFORMATION
  Report Type: Report from Study
  Country: US (occurrence: US)
  Receive Date: 20200123
  Receipt Date: 20220218
  Transmission Date: 20220423
  Serious: Yes (Hospitalization, Other)
  Sender: FDA-Public Use
  Company Number: US-NOVARTISTESTPH-NVSC2020US015670

PATIENT
  Age: 19 Year
  Sex: Male

DRUGS (14)
  1. RUXOLITINIB [Suspect]
     Active Substance: RUXOLITINIB
     Indication: B precursor type acute leukaemia
     Dosage: 110 MG, BID
     Route: 048
     Dates: start: 20190218, end: 20191027
  2. RUXOLITINIB [Suspect]
     Active Substance: RUXOLITINIB
     Dosage: 110 MG, BID
     Route: 048
     Dates: start: 20191029, end: 20191118
  3. RUXOLITINIB [Suspect]
     Active Substance: RUXOLITINIB
     Dosage: 110 MG, BID
     Route: 048
     Dates: start: 20191126
  4. VINCRISTINE [Suspect]
     Active Substance: VINCRISTINE
     Indication: B precursor type acute leukaemia
     Dosage: 220 MILLIGRAM/PROTOCOL
     Route: 042
     Dates: start: 20190218, end: 20191027
  5. VINCRISTINE [Suspect]
     Active Substance: VINCRISTINE
     Dosage: 220 MILLIGRAM/PROTOCOL
     Route: 042
     Dates: start: 20191029, end: 20191118
  6. VINCRISTINE [Suspect]
     Active Substance: VINCRISTINE
     Dosage: 220 MILLIGRAM/PROTOCOL
     Route: 042
     Dates: start: 20191126
  7. PEGASPARGASE [Suspect]
     Active Substance: PEGASPARGASE
     Indication: B precursor type acute leukaemia
     Dosage: 220 MILLIGRAM/PROTOCOL
     Route: 042
     Dates: start: 20190218, end: 20191027
  8. PEGASPARGASE [Suspect]
     Active Substance: PEGASPARGASE
     Dosage: 220 MILLIGRAM/PROTOCOL
     Route: 042
     Dates: start: 20191029, end: 20191118
  9. PEGASPARGASE [Suspect]
     Active Substance: PEGASPARGASE
     Dosage: 220 MILLIGRAM/PROTOCOL
     Route: 042
     Dates: start: 20191126
  10. HYDROXYZINE [Concomitant]
     Active Substance: HYDROXYZINE HYDROCHLORIDE
     Indication: Nausea
     Dosage: 25 MILLIGRAM, PRN
     Route: 048
     Dates: start: 20190218
  11. HYDROXYZINE [Concomitant]
     Active Substance: HYDROXYZINE HYDROCHLORIDE
     Indication: Vomiting
     Dosage: UNK
     Route: 065
  12. BACTRIM DS [Concomitant]
     Active Substance: SULFAMETHOXAZOLE\TRIMETHOPRIM
     Indication: Antifungal prophylaxis
     Dosage: 800/160 MG BID
     Route: 048
     Dates: start: 20200316
  13. BACTRIM DS [Concomitant]
     Active Substance: SULFAMETHOXAZOLE\TRIMETHOPRIM
     Indication: Antifungal prophylaxis
  14. MOTRIN [Concomitant]
     Active Substance: IBUPROFEN
     Indication: Back pain
     Dosage: 600 MG (ONE DOSE)
     Route: 048
     Dates: start: 20190316

REACTIONS (5)
  - Pyrexia [Recovered/Resolved]
  - Colitis [Recovered/Resolved]
  - Hepatic steatosis [Recovering/Resolving]
  - Iron overload [Recovering/Resolving]
  - Gamma-glutamyltransferase increased [Recovering/Resolving]

NARRATIVE: CASE EVENT DATE: 20191027
